FAERS Safety Report 21062460 (Version 1)
Quarter: 2022Q3

REPORT INFORMATION
  Report Type: Spontaneous
  Country: US (occurrence: US)
  Receive Date: 20220711
  Receipt Date: 20220711
  Transmission Date: 20221027
  Serious: No
  Sender: FDA-Public Use
  Company Number: US-SA-SAC20220707001839

PATIENT
  Age: 48 Year
  Sex: Female

DRUGS (24)
  1. AUBAGIO [Suspect]
     Active Substance: TERIFLUNOMIDE
     Indication: Multiple sclerosis
     Dosage: DOSE: 14MG FREQUENCY: DAILY
     Route: 048
     Dates: start: 2018
  2. FISH OIL [Concomitant]
     Active Substance: FISH OIL
  3. CALCIUM\CHOLECALCIFEROL [Concomitant]
     Active Substance: CALCIUM\CHOLECALCIFEROL
  4. DICYCLOMINE HYDROCHLORIDE [Concomitant]
     Active Substance: DICYCLOMINE HYDROCHLORIDE
     Dosage: 10MG
  5. GLIMEPIRIDE [Concomitant]
     Active Substance: GLIMEPIRIDE
  6. COLESTIPOL HYDROCHLORIDE [Concomitant]
     Active Substance: COLESTIPOL HYDROCHLORIDE
  7. CYANOCOBALAMIN [Concomitant]
     Active Substance: CYANOCOBALAMIN
  8. POTASSIUM CHLORIDE [Concomitant]
     Active Substance: POTASSIUM CHLORIDE
  9. ABILIFY [Concomitant]
     Active Substance: ARIPIPRAZOLE
  10. KEPPRA [Concomitant]
     Active Substance: LEVETIRACETAM
  11. AMLODIPINE BESYLATE [Concomitant]
     Active Substance: AMLODIPINE BESYLATE
  12. ESCITALOPRAM OXALATE [Concomitant]
     Active Substance: ESCITALOPRAM OXALATE
  13. VALSARTAN [Concomitant]
     Active Substance: VALSARTAN
  14. METOPROLOL TARTRATE [Concomitant]
     Active Substance: METOPROLOL TARTRATE
  15. FARXIGA [Concomitant]
     Active Substance: DAPAGLIFLOZIN PROPANEDIOL
     Dosage: 05MG
  16. CLONAZEPAM [Concomitant]
     Active Substance: CLONAZEPAM
  17. LEVOTHYROXINE [Concomitant]
     Active Substance: LEVOTHYROXINE
  18. DILTIAZEM HYDROCHLORIDE [Concomitant]
     Active Substance: DILTIAZEM HYDROCHLORIDE
     Dosage: 30MG
  19. PRAVASTATIN SODIUM [Concomitant]
     Active Substance: PRAVASTATIN SODIUM
  20. LOPERAMIDE HYDROCHLORIDE [Concomitant]
     Active Substance: LOPERAMIDE HYDROCHLORIDE
  21. VITAMINS [Concomitant]
     Active Substance: VITAMINS
  22. NUVIGIL [Concomitant]
     Active Substance: ARMODAFINIL
  23. SODIUM CHLORIDE [Concomitant]
     Active Substance: SODIUM CHLORIDE
  24. LASIX [Concomitant]
     Active Substance: FUROSEMIDE

REACTIONS (1)
  - Diarrhoea [Unknown]
